FAERS Safety Report 4539584-1 (Version None)
Quarter: 2004Q4

REPORT INFORMATION
  Report Type: 
  Country: None (occurrence: None)
  Receive Date: 20041227
  Receipt Date: 20041227
  Transmission Date: 20050328
  Serious: Yes (Death)
  Sender: FDA-Public Use
  Company Number: None

PATIENT
  Age: 42 Year
  Sex: Female
  Weight: 61 kg

DRUGS (7)
  1. PLAVIX [Suspect]
     Indication: CORONARY ARTERIAL STENT INSERTION
     Dosage: 75 MG DAILY BY MOUTH
     Dates: start: 20041115, end: 20041115
  2. PLAVIX [Suspect]
     Indication: MYOCARDIAL INFARCTION
     Dosage: 75 MG DAILY BY MOUTH
     Dates: start: 20041115, end: 20041115
  3. ASPIRIN [Concomitant]
  4. METOPROLOL TARTRATE [Concomitant]
  5. SIMVASTATIN [Concomitant]
  6. TYLENOL PM [Concomitant]
  7. CARDIAC STENT [Concomitant]

REACTIONS (9)
  - BRADYCARDIA [None]
  - CARDIO-RESPIRATORY ARREST [None]
  - EPIGASTRIC DISCOMFORT [None]
  - HAEMOLYSIS [None]
  - HYPERKALAEMIA [None]
  - METABOLIC ACIDOSIS [None]
  - SOMNOLENCE [None]
  - THROMBOTIC THROMBOCYTOPENIC PURPURA [None]
  - URINE OUTPUT DECREASED [None]
